FAERS Safety Report 5966276-4 (Version None)
Quarter: 2008Q4

REPORT INFORMATION
  Report Type: 
  Country: None (occurrence: None)
  Receive Date: 20081125
  Receipt Date: 20081114
  Transmission Date: 20090506
  Serious: Yes (Death)
  Sender: FDA-Public Use
  Company Number: GB-ELI_LILLY_AND_COMPANY-GB200811003518

PATIENT
  Age: 50 Year
  Sex: Male

DRUGS (2)
  1. ZYPREXA [Suspect]
     Indication: PSYCHOTIC DISORDER
     Dosage: 10 MG, DAILY (1/D)
     Route: 048
     Dates: start: 20070202
  2. ACAMPROSATE [Concomitant]
     Indication: ALCOHOL ABUSE
     Dates: start: 20071201

REACTIONS (3)
  - ACUTE MYOCARDIAL INFARCTION [None]
  - DISEASE RECURRENCE [None]
  - WEIGHT INCREASED [None]
